FAERS Safety Report 5333649-2 (Version None)
Quarter: 2007Q2

REPORT INFORMATION
  Report Type: 
  Country: None (occurrence: None)
  Receive Date: 20070524
  Receipt Date: 20070514
  Transmission Date: 20071010
  Serious: Yes (Hospitalization)
  Sender: FDA-Public Use
  Company Number: HQWYE316823MAY07

PATIENT
  Sex: Female
  Weight: 57 kg

DRUGS (7)
  1. TACROLIMUS [Suspect]
     Indication: PROPHYLAXIS AGAINST TRANSPLANT REJECTION
     Route: 048
     Dates: start: 20060430
  2. PREDNISOLONE [Concomitant]
     Indication: PROPHYLAXIS AGAINST TRANSPLANT REJECTION
     Dosage: UNKNOWN
     Route: 065
     Dates: start: 20060410
  3. CLONIDINE [Concomitant]
     Indication: HYPERTENSION
     Dosage: UNKNOWN
     Route: 065
  4. HYDROCHLOROTHIAZIDE [Concomitant]
     Indication: RENAL IMPAIRMENT
     Dosage: UNKNOWN
     Route: 065
  5. INSULIN HUMAN INJECTION, ISOPHANE [Concomitant]
     Indication: DIABETES MELLITUS
     Dosage: UNKNOWN
     Route: 065
  6. MYCOPHENOLATE MOFETIL [Suspect]
     Indication: PROPHYLAXIS AGAINST TRANSPLANT REJECTION
     Route: 048
     Dates: start: 20060415
  7. PANTOPRAZOLE SODIUM [Concomitant]
     Indication: PROPHYLAXIS AGAINST GASTROINTESTINAL ULCER
     Dosage: UNKNOWN
     Route: 065
     Dates: start: 20060410

REACTIONS (1)
  - HYPERTENSIVE CRISIS [None]
